FAERS Safety Report 8830827 (Version 2)
Quarter: 2013Q1

REPORT INFORMATION
  Report Type: Spontaneous
  Country: BR (occurrence: BR)
  Receive Date: 20121008
  Receipt Date: 20130114
  Transmission Date: 20140127
  Serious: Yes (Hospitalization, Disabling, Other)
  Sender: FDA-Public Use
  Company Number: BR-ASTRAZENECA-2012SE75287

PATIENT
  Age: 89 Year
  Sex: Female

DRUGS (1)
  1. SELOZOK [Suspect]
     Indication: HYPERTENSION
     Route: 048

REACTIONS (4)
  - Cerebrovascular accident [Recovered/Resolved with Sequelae]
  - Aphonia [Recovered/Resolved]
  - Monoplegia [Recovering/Resolving]
  - Monoplegia [Recovered/Resolved]
